FAERS Safety Report 5567477-X (Version None)
Quarter: 2007Q4

REPORT INFORMATION
  Report Type: 
  Country: None (occurrence: None)
  Receive Date: 20071219
  Receipt Date: 20071211
  Transmission Date: 20080405
  Serious: Yes (Life-Threatening, Hospitalization)
  Sender: FDA-Public Use
  Company Number: FR-MERCK-0712FRA00042

PATIENT
  Age: 75 Year
  Sex: Female

DRUGS (7)
  1. ZOCOR [Suspect]
     Route: 048
     Dates: end: 20070815
  2. FLUINDIONE [Suspect]
     Indication: ATRIAL FIBRILLATION
     Route: 048
     Dates: end: 20070815
  3. VALSARTAN [Suspect]
     Indication: HYPERTENSION
     Route: 048
     Dates: end: 20070815
  4. ACARBOSE [Suspect]
     Indication: TYPE 2 DIABETES MELLITUS
     Route: 048
     Dates: end: 20070815
  5. DIGOXIN [Suspect]
     Indication: ATRIAL FIBRILLATION
     Route: 048
     Dates: end: 20070815
  6. BISOPROLOL [Suspect]
     Indication: HYPERTENSION
     Route: 048
     Dates: end: 20070815
  7. PIRACETAM [Suspect]
     Route: 048
     Dates: end: 20070815

REACTIONS (1)
  - SUBDURAL HAEMATOMA [None]
